FAERS Safety Report 20577441 (Version 1)
Quarter: 2022Q1

REPORT INFORMATION
  Report Type: Spontaneous
  Country: US (occurrence: None)
  Receive Date: 20220310
  Receipt Date: 20220310
  Transmission Date: 20220423
  Serious: No
  Sender: FDA-Public Use
  Company Number: None

PATIENT
  Sex: Male
  Weight: 14 kg

DRUGS (4)
  1. LAPINE T-LYMPHOCYTE IMMUNE GLOBULIN [Suspect]
     Active Substance: LAPINE T-LYMPHOCYTE IMMUNE GLOBULIN
     Dates: end: 20220204
  2. BUSULFAN [Suspect]
     Active Substance: BUSULFAN
     Dates: end: 20220207
  3. CYCLOPHOSPHAMIDE [Suspect]
     Active Substance: CYCLOPHOSPHAMIDE
     Dates: end: 20220209
  4. METHOTREXATE [Suspect]
     Active Substance: METHOTREXATE
     Dates: end: 20220216

REACTIONS (20)
  - Parainfluenzae virus infection [None]
  - Dyspnoea [None]
  - Oxygen saturation decreased [None]
  - Abdominal distension [None]
  - General physical health deterioration [None]
  - White blood cell count decreased [None]
  - Haemoglobin decreased [None]
  - Platelet count decreased [None]
  - Neutrophil count decreased [None]
  - Hypervolaemia [None]
  - Weight increased [None]
  - Engraftment syndrome [None]
  - Capillary leak syndrome [None]
  - Haemolytic transfusion reaction [None]
  - Grunting [None]
  - Productive cough [None]
  - Ascites [None]
  - Pleural effusion [None]
  - Blood creatinine increased [None]
  - Bone marrow transplant [None]

NARRATIVE: CASE EVENT DATE: 20220220
